FAERS Safety Report 25886567 (Version 3)
Quarter: 2025Q4

REPORT INFORMATION
  Report Type: Spontaneous
  Country: BR (occurrence: BR)
  Receive Date: 20251006
  Receipt Date: 20251024
  Transmission Date: 20260118
  Serious: Yes (Hospitalization)
  Sender: MERCK SHARP & DOHME LLC
  Company Number: BR-009507513-2334805

PATIENT
  Age: 55 Year
  Sex: Female
  Weight: 105 kg

DRUGS (14)
  1. WELIREG [Suspect]
     Active Substance: BELZUTIFAN
     Indication: Von Hippel-Lindau disease
     Dosage: 3 TABLETS ON AN EMPTY STOMACH
     Dates: start: 1999
  2. SAXAGLIPTIN [Concomitant]
     Active Substance: SAXAGLIPTIN
  3. VITAMIN D [Concomitant]
     Active Substance: VITAMIN D NOS
  4. ATENOLOL [Concomitant]
     Active Substance: ATENOLOL
  5. FUROSEMIDE [Concomitant]
     Active Substance: FUROSEMIDE
  6. SIMVASTATIN [Concomitant]
     Active Substance: SIMVASTATIN
  7. PURAN [Concomitant]
     Active Substance: LEVOTHYROXINE SODIUM
  8. NPH INSULIN [Concomitant]
     Active Substance: INSULIN BEEF
  9. INSULIN NOS [Concomitant]
     Active Substance: INSULIN NOS
  10. DIMENHYDRINATE [Concomitant]
     Active Substance: DIMENHYDRINATE
  11. ACETAMINOPHEN [Concomitant]
     Active Substance: ACETAMINOPHEN
  12. DIPYRONE [Concomitant]
     Active Substance: DIPYRONE
  13. LORATADINE [Concomitant]
     Active Substance: LORATADINE
  14. GLICLAZIDE [Concomitant]
     Active Substance: GLICLAZIDE

REACTIONS (6)
  - Anaemia [Recovering/Resolving]
  - Vomiting [Unknown]
  - Syncope [Unknown]
  - Asthenia [Unknown]
  - Fatigue [Unknown]
  - Nausea [Unknown]

NARRATIVE: CASE EVENT DATE: 20250916
